FAERS Safety Report 21545532 (Version 1)
Quarter: 2022Q4

REPORT INFORMATION
  Report Type: Spontaneous
  Country: US (occurrence: US)
  Receive Date: 20221103
  Receipt Date: 20221103
  Transmission Date: 20230113
  Serious: No
  Sender: FDA-Public Use
  Company Number: US-UNITED THERAPEUTICS-UNT-2022-025641

PATIENT
  Age: 56 Year
  Sex: Male

DRUGS (2)
  1. REMODULIN [Suspect]
     Active Substance: TREPROSTINIL
     Indication: Pulmonary arterial hypertension
     Dosage: UNK, CONTINUING
     Route: 058
     Dates: start: 20210721
  2. REMODULIN [Suspect]
     Active Substance: TREPROSTINIL
     Dosage: 0.0496 ?G/KG, CONTINUING
     Route: 058

REACTIONS (3)
  - Diarrhoea [Recovering/Resolving]
  - Device occlusion [Recovered/Resolved]
  - Device kink [Unknown]

NARRATIVE: CASE EVENT DATE: 20220901
